FAERS Safety Report 5798845-9 (Version None)
Quarter: 2008Q2

REPORT INFORMATION
  Report Type: 
  Country: None (occurrence: None)
  Receive Date: 20080630
  Receipt Date: 20080623
  Transmission Date: 20081010
  Serious: Yes (Life-Threatening)
  Sender: FDA-Public Use
  Company Number: 6041867

PATIENT
  Age: 72 Year
  Sex: Male

DRUGS (6)
  1. BISOPROLOL FUMARATE [Suspect]
     Indication: DRUG USE FOR UNKNOWN INDICATION
     Dosage: NOT REPORTED; ORAL
     Route: 048
     Dates: end: 20080129
  2. RILUZOLE [Suspect]
     Indication: AMYOTROPHIC LATERAL SCLEROSIS
     Dosage: 100 MG (100 MG); ORAL
     Route: 048
     Dates: start: 20080110, end: 20080129
  3. KARDEGIC (POWDER FOR ORAL SOLUTION) 9ACETYLSALICYLATE LYSINE) [Suspect]
     Indication: DRUG USE FOR UNKNOWN INDICATION
     Dosage: 300 MG (300 MG, 1 D); ORAL
     Route: 048
     Dates: end: 20080129
  4. OMEPRAZOLE [Suspect]
     Indication: DRUG USE FOR UNKNOWN INDICATION
     Dosage: ORAL
     Route: 048
     Dates: end: 20080129
  5. ZESTRIL [Concomitant]
  6. ALLOPURINOL [Concomitant]

REACTIONS (4)
  - ACUTE RESPIRATORY FAILURE [None]
  - INTERSTITIAL LUNG DISEASE [None]
  - PURPURA [None]
  - RESPIRATORY DISTRESS [None]
